FAERS Safety Report 18440914 (Version 2)
Quarter: 2021Q2

REPORT INFORMATION
  Report Type: Report from Study
  Country: US (occurrence: US)
  Receive Date: 20201029
  Receipt Date: 20210624
  Transmission Date: 20210717
  Serious: Yes (Hospitalization, Other)
  Sender: FDA-Public Use
  Company Number: US-TAKEDA-US202010066

PATIENT
  Sex: Female

DRUGS (12)
  1. TEDUGLUTIDE [Suspect]
     Active Substance: TEDUGLUTIDE
     Indication: SHORT-BOWEL SYNDROME
     Dosage: 1.26 MILLIGRAM, QD
     Route: 058
     Dates: start: 20200217
  2. TEDUGLUTIDE [Suspect]
     Active Substance: TEDUGLUTIDE
     Dosage: 1.26 MILLIGRAM, QD
     Route: 058
     Dates: start: 20200218
  3. TEDUGLUTIDE [Suspect]
     Active Substance: TEDUGLUTIDE
     Dosage: 1.26 MILLIGRAM, QD
     Route: 058
     Dates: start: 20200218
  4. TEDUGLUTIDE [Suspect]
     Active Substance: TEDUGLUTIDE
     Indication: SHORT-BOWEL SYNDROME
     Dosage: 1.26 MILLIGRAM, QD
     Route: 058
     Dates: start: 20200217
  5. TEDUGLUTIDE [Suspect]
     Active Substance: TEDUGLUTIDE
     Dosage: 1.26 MILLIGRAM, QD
     Route: 058
     Dates: start: 202002
  6. TEDUGLUTIDE [Suspect]
     Active Substance: TEDUGLUTIDE
     Dosage: 1.26 MILLIGRAM, QD
     Route: 058
     Dates: start: 20200218
  7. TEDUGLUTIDE [Suspect]
     Active Substance: TEDUGLUTIDE
     Dosage: 1.26 MILLIGRAM, QD
     Route: 058
     Dates: start: 20200218
  8. TEDUGLUTIDE [Suspect]
     Active Substance: TEDUGLUTIDE
     Indication: SHORT-BOWEL SYNDROME
     Dosage: 1.26 MILLIGRAM, QD
     Route: 058
     Dates: start: 20200217
  9. TEDUGLUTIDE [Suspect]
     Active Substance: TEDUGLUTIDE
     Dosage: 1.26 MILLIGRAM, QD
     Route: 058
     Dates: start: 202002
  10. TEDUGLUTIDE [Suspect]
     Active Substance: TEDUGLUTIDE
     Dosage: 1.26 MILLIGRAM, QD
     Route: 058
     Dates: start: 202002
  11. TEDUGLUTIDE [Suspect]
     Active Substance: TEDUGLUTIDE
     Indication: SHORT-BOWEL SYNDROME
     Dosage: 1.26 MILLIGRAM, QD
     Route: 058
     Dates: start: 20200217
  12. TEDUGLUTIDE [Suspect]
     Active Substance: TEDUGLUTIDE
     Dosage: 1.26 MILLIGRAM, QD
     Route: 058
     Dates: start: 202002

REACTIONS (4)
  - Injection site pain [Unknown]
  - Injection site haemorrhage [Unknown]
  - Needle issue [Unknown]
  - Hospitalisation [Unknown]
